FAERS Safety Report 12147272 (Version 2)
Quarter: 2016Q2

REPORT INFORMATION
  Report Type: Spontaneous
  Country: US (occurrence: US)
  Receive Date: 20160304
  Receipt Date: 20160420
  Transmission Date: 20160815
  Serious: Yes (Other)
  Sender: FDA-Public Use
  Company Number: US-ALKERMES INC.-ALK-2016-000473

PATIENT

DRUGS (1)
  1. VIVITROL [Suspect]
     Active Substance: NALTREXONE
     Indication: ALCOHOLISM
     Dosage: 380 MG, QMO
     Route: 030
     Dates: start: 201305, end: 201411

REACTIONS (3)
  - Alcohol use [Unknown]
  - Breast cancer [Unknown]
  - Alcoholism [Recovered/Resolved]

NARRATIVE: CASE EVENT DATE: 201508
